FAERS Safety Report 17646434 (Version 1)
Quarter: 2020Q2

REPORT INFORMATION
  Report Type: Spontaneous
  Country: ES (occurrence: ES)
  Receive Date: 20200408
  Receipt Date: 20200408
  Transmission Date: 20200713
  Serious: Yes (Death, Other)
  Sender: FDA-Public Use
  Company Number: ES-PFIZER INC-2020143328

PATIENT
  Age: 67 Year
  Sex: Male

DRUGS (2)
  1. PIPERACILLIN AND TAZOBACTAM [Suspect]
     Active Substance: PIPERACILLIN SODIUM\TAZOBACTAM SODIUM
     Indication: ABDOMINAL SEPSIS
     Dosage: 1 DF, 4X/DAY(EVERY 6 HOURS IN CONTINUOUS INFUSION)
     Route: 041
     Dates: start: 20200310, end: 20200313
  2. TYGACIL [Suspect]
     Active Substance: TIGECYCLINE
     Indication: ABDOMINAL SEPSIS
     Dosage: 100 MG, 2X/DAY
     Route: 042
     Dates: start: 20200310, end: 20200313

REACTIONS (2)
  - Hepatitis [Recovering/Resolving]
  - Hyperbilirubinaemia [Recovering/Resolving]

NARRATIVE: CASE EVENT DATE: 20200315
